FAERS Safety Report 5025207-4 (Version None)
Quarter: 2006Q2

REPORT INFORMATION
  Report Type: 
  Country: None (occurrence: None)
  Receive Date: 20060613
  Receipt Date: 20060201
  Transmission Date: 20061013
  Serious: Yes (Hospitalization)
  Sender: FDA-Public Use
  Company Number: DE-GLAXOSMITHKLINE-D0048606A

PATIENT
  Age: 60 Year
  Sex: Female
  Weight: 67 kg

DRUGS (3)
  1. ELMENDOS [Suspect]
     Indication: BIPOLAR DISORDER
     Dosage: 100MG PER DAY
     Route: 048
     Dates: start: 20040518
  2. VALPROATE SODIUM [Concomitant]
     Dosage: 1500MG PER DAY
     Route: 065
     Dates: end: 20040518
  3. TAVOR [Concomitant]
     Indication: RESTLESSNESS
     Route: 048
     Dates: end: 20040618

REACTIONS (4)
  - BIPOLAR I DISORDER [None]
  - DRUG INEFFECTIVE [None]
  - MANIA [None]
  - PSYCHOMOTOR HYPERACTIVITY [None]
